FAERS Safety Report 7413860-7 (Version None)
Quarter: 2011Q2

REPORT INFORMATION
  Report Type: 
  Country: None (occurrence: None)
  Receive Date: 20110414
  Receipt Date: 20110331
  Transmission Date: 20111010
  Serious: Yes (Other)
  Sender: FDA-Public Use
  Company Number: US-MYLANLABS-2011S1007083

PATIENT
  Age: 62 Year
  Sex: Male

DRUGS (2)
  1. PREDNISONE [Concomitant]
     Indication: MYASTHENIA GRAVIS
     Route: 065
  2. AZATHIOPRINE [Suspect]
     Indication: MYASTHENIA GRAVIS
     Route: 065

REACTIONS (3)
  - THYMOMA MALIGNANT [None]
  - METASTASES TO LUNG [None]
  - MALIGNANT MELANOMA [None]
